FAERS Safety Report 7549805-9 (Version None)
Quarter: 2011Q2

REPORT INFORMATION
  Report Type: 
  Country: None (occurrence: None)
  Receive Date: 20110615
  Receipt Date: 20110608
  Transmission Date: 20111010
  Serious: Yes (Hospitalization)
  Sender: FDA-Public Use
  Company Number: US-TEVA-285007USA

PATIENT
  Age: 59 Year
  Sex: Female
  Weight: 84.262 kg

DRUGS (5)
  1. FLUOROURACIL [Suspect]
     Indication: COLON CANCER
     Route: 042
     Dates: start: 20110315, end: 20110329
  2. FLUOROURACIL [Suspect]
     Dosage: OVER 46-48
     Route: 042
     Dates: start: 20110315, end: 20110329
  3. OXALIPLATIN [Suspect]
     Indication: COLON CANCER
     Dosage: OVER 2 HOURS
     Route: 042
     Dates: start: 20110315, end: 20110329
  4. CELECOXIB [Suspect]
     Indication: COLON CANCER
     Dosage: 400 MILLIGRAM;
     Route: 048
     Dates: start: 20110315
  5. LEUCOVORIN CALCIUM [Suspect]
     Indication: COLON CANCER
     Dosage: OVER 2 HOURS
     Route: 042
     Dates: start: 20110315, end: 20110329

REACTIONS (9)
  - NAUSEA [None]
  - DIARRHOEA [None]
  - DECREASED APPETITE [None]
  - ENTERITIS [None]
  - WEIGHT DECREASED [None]
  - VOMITING [None]
  - DEHYDRATION [None]
  - HYPOKALAEMIA [None]
  - ABDOMINAL PAIN [None]
